FAERS Safety Report 20823558 (Version 1)
Quarter: 2022Q2

REPORT INFORMATION
  Report Type: Spontaneous
  Country: GB (occurrence: GB)
  Receive Date: 20220513
  Receipt Date: 20220513
  Transmission Date: 20220721
  Serious: Yes (Life-Threatening, Disabling, Other)
  Sender: FDA-Public Use
  Company Number: GB-MHRA-MED-202205021252185460-JTFUG

PATIENT
  Sex: Male
  Weight: 69 kg

DRUGS (4)
  1. ADALIMUMAB [Suspect]
     Active Substance: ADALIMUMAB
     Indication: Adverse drug reaction
     Dosage: 40 MILLIGRAM, Q2WK
     Route: 065
     Dates: start: 20181218, end: 20190201
  2. ETANERCEPT [Suspect]
     Active Substance: ETANERCEPT
     Indication: Rheumatoid arthritis
     Dosage: 50MG ONCE WEEKLY ; ;
     Route: 065
     Dates: start: 20170401, end: 20191201
  3. BARICITINIB [Suspect]
     Active Substance: BARICITINIB
     Indication: Adverse drug reaction
     Dosage: 200 MILLIGRAM, QD
     Route: 065
     Dates: start: 20190201, end: 20220428
  4. RITUXIMAB [Suspect]
     Active Substance: RITUXIMAB
     Indication: Rheumatoid arthritis
     Dosage: 1 COURSE =2X 1G INFUSIONS . RECEIVED TOTAL 4 COURSES. ; ;
     Route: 065
     Dates: start: 20131101, end: 20160501

REACTIONS (1)
  - Metastases to bone [Not Recovered/Not Resolved]

NARRATIVE: CASE EVENT DATE: 20210301
